FAERS Safety Report 6461087-8 (Version None)
Quarter: 2009Q4

REPORT INFORMATION
  Report Type: 
  Country: None (occurrence: None)
  Receive Date: 20091130
  Receipt Date: 20091120
  Transmission Date: 20100525
  Serious: Yes (Hospitalization)
  Sender: FDA-Public Use
  Company Number: B0607822A

PATIENT
  Age: 70 Year
  Sex: Female

DRUGS (2)
  1. ARIXTRA [Suspect]
     Indication: THROMBOSIS PROPHYLAXIS
     Dosage: 1.5MG PER DAY
     Route: 058
     Dates: start: 20091001
  2. LOXONIN [Concomitant]
     Route: 048

REACTIONS (2)
  - POST PROCEDURAL HAEMATOMA [None]
  - SWELLING [None]
